FAERS Safety Report 14757827 (Version 2)
Quarter: 2018Q2

REPORT INFORMATION
  Report Type: Spontaneous
  Country: US (occurrence: US)
  Receive Date: 20180413
  Receipt Date: 20180606
  Transmission Date: 20180711
  Serious: No
  Sender: FDA-Public Use
  Company Number: PHHY2018US065523

PATIENT
  Sex: Female

DRUGS (2)
  1. ICAPS [Suspect]
     Active Substance: MINERALS\VITAMINS
     Dosage: 3 DF, QD
     Route: 065
  2. ICAPS [Suspect]
     Active Substance: MINERALS\VITAMINS
     Indication: MACULAR DEGENERATION
     Dosage: 6 DF, QD
     Route: 065

REACTIONS (1)
  - Incorrect dose administered [Unknown]
